FAERS Safety Report 6644063-1 (Version None)
Quarter: 2010Q1

REPORT INFORMATION
  Report Type: 
  Country: None (occurrence: None)
  Receive Date: 20100322
  Receipt Date: 20100312
  Transmission Date: 20100710
  Serious: Yes (Other)
  Sender: FDA-Public Use
  Company Number: JP-WYE-H09506309

PATIENT
  Age: 71 Year
  Sex: Female

DRUGS (2)
  1. ANCARON [Suspect]
     Indication: ATRIAL FIBRILLATION
     Route: 065
     Dates: start: 20070301
  2. ANCARON [Suspect]
     Indication: ATRIAL FLUTTER

REACTIONS (2)
  - HYPOTHYROIDISM [None]
  - SICK SINUS SYNDROME [None]
